FAERS Safety Report 18356136 (Version 2)
Quarter: 2020Q4

REPORT INFORMATION
  Report Type: Spontaneous
  Country: JP (occurrence: JP)
  Receive Date: 20201007
  Receipt Date: 20201019
  Transmission Date: 20210114
  Serious: Yes (Hospitalization)
  Sender: FDA-Public Use
  Company Number: JP-JNJFOC-20201006044

PATIENT
  Age: 76 Year
  Sex: Male
  Weight: 55.5 kg

DRUGS (7)
  1. MONTELUKAST SODIUM. [Concomitant]
     Active Substance: MONTELUKAST SODIUM
     Dosage: DAILY DOSE 10 MG
     Route: 048
     Dates: end: 20200725
  2. L-CARBOCISTEINE [Concomitant]
     Active Substance: CARBOCYSTEINE
     Dosage: DAILY DOSE 1500 MG
     Route: 048
     Dates: end: 20200725
  3. XARELTO [Suspect]
     Active Substance: RIVAROXABAN
     Indication: ATRIAL FIBRILLATION
     Dosage: 10 MG, QD
     Route: 048
     Dates: start: 20150523, end: 20200708
  4. XARELTO [Suspect]
     Active Substance: RIVAROXABAN
     Indication: ATRIAL FIBRILLATION
     Dosage: 10 MG, QD
     Route: 048
     Dates: start: 20200714
  5. AMITIZA [Concomitant]
     Active Substance: LUBIPROSTONE
     Dosage: DAILY DOSE 24 UG
     Route: 048
     Dates: end: 20200725
  6. BIO-THREE [Concomitant]
     Active Substance: HERBALS
     Dosage: DAILY DOSE 3 DF
     Route: 048
     Dates: end: 20200725
  7. PRAVASTATIN SODIUM. [Concomitant]
     Active Substance: PRAVASTATIN SODIUM
     Dosage: DAILY DOSE 5 MG

REACTIONS (4)
  - Hemiplegia [Recovered/Resolved]
  - Cerebral artery embolism [Recovered/Resolved]
  - Fall [Recovered/Resolved]
  - Altered state of consciousness [Recovered/Resolved]

NARRATIVE: CASE EVENT DATE: 20200710
